FAERS Safety Report 11677009 (Version 1)
Quarter: 2015Q4

REPORT INFORMATION
  Report Type: Report from Study
  Country: US (occurrence: US)
  Receive Date: 20151028
  Receipt Date: 20151028
  Transmission Date: 20160304
  Serious: Yes (Hospitalization)
  Sender: FDA-Public Use
  Company Number: US-GILEAD-2015-0176141

PATIENT
  Age: 46 Year
  Sex: Female

DRUGS (1)
  1. LEDIPASVIR/SOFOSBUVIR [Suspect]
     Active Substance: LEDIPASVIR\SOFOSBUVIR
     Indication: CHRONIC HEPATITIS C
     Dosage: 1 DF, QD
     Route: 048
     Dates: start: 20151003

REACTIONS (6)
  - Viral infection [Unknown]
  - Headache [Unknown]
  - Asthenia [Unknown]
  - Dehydration [Unknown]
  - Malaise [Unknown]
  - Vomiting [Unknown]
